FAERS Safety Report 7961817-X (Version None)
Quarter: 2011Q4

REPORT INFORMATION
  Report Type: 
  Country: None (occurrence: None)
  Receive Date: 20111207
  Receipt Date: 20111207
  Transmission Date: 20120403
  Serious: No
  Sender: FDA-Public Use
  Company Number: None

PATIENT
  Sex: Female
  Weight: 83 kg

DRUGS (1)
  1. SENSORCAINE [Suspect]
     Indication: KNEE ARTHROPLASTY
     Dates: start: 20111115, end: 20111115

REACTIONS (1)
  - ANAESTHETIC COMPLICATION [None]
